FAERS Safety Report 7558824-8 (Version None)
Quarter: 2011Q2

REPORT INFORMATION
  Report Type: 
  Country: None (occurrence: None)
  Receive Date: 20110621
  Receipt Date: 20110607
  Transmission Date: 20111010
  Serious: Yes (Hospitalization)
  Sender: FDA-Public Use
  Company Number: US-ROCHE-782963

PATIENT

DRUGS (4)
  1. TEMSIROLIMUS [Suspect]
     Dosage: OVER 30 MIN ON DAYS 1, 8, 15 AND 22, LAST ADMINISTRATION DATE OF IND AGENT 15 NOV 2010
     Route: 042
     Dates: start: 20100222
  2. FUROSEMIDE [Suspect]
     Route: 065
  3. ALFUZOSIN HCL [Suspect]
     Route: 065
  4. BEVACIZUMAB [Suspect]
     Dosage: OVER 30-90 MIN ON DAYS 1 AND 15, LAST ADMINISTRATION DATE OF IND AGENT 03 JAN 2011
     Route: 042
     Dates: start: 20100222

REACTIONS (2)
  - RENAL FAILURE [None]
  - DEHYDRATION [None]
